FAERS Safety Report 7824326-4 (Version None)
Quarter: 2011Q4

REPORT INFORMATION
  Report Type: 
  Country: None (occurrence: None)
  Receive Date: 20111019
  Receipt Date: 20111010
  Transmission Date: 20120403
  Serious: Yes (Other)
  Sender: FDA-Public Use
  Company Number: FR-BAYER-2011-096158

PATIENT

DRUGS (1)
  1. ACETYLSALICYLIC ACID SRT [Suspect]
     Dosage: UNK

REACTIONS (1)
  - ANGIOEDEMA [None]
